FAERS Safety Report 20333726 (Version 1)
Quarter: 2022Q1

REPORT INFORMATION
  Report Type: Spontaneous
  Country: US (occurrence: None)
  Receive Date: 20220113
  Receipt Date: 20220113
  Transmission Date: 20220424
  Serious: Yes (Other)
  Sender: FDA-Public Use
  Company Number: None

PATIENT
  Age: 69 Year
  Sex: Female
  Weight: 53.52 kg

DRUGS (2)
  1. TERBINAFINE [Suspect]
     Active Substance: TERBINAFINE
  2. TERBINAFINE [Concomitant]
     Active Substance: TERBINAFINE
     Dates: start: 20210830, end: 20210906

REACTIONS (5)
  - Peripheral swelling [None]
  - Erythema [None]
  - Liver function test increased [None]
  - Pulmonary embolism [None]
  - Alopecia [None]

NARRATIVE: CASE EVENT DATE: 20210922
